FAERS Safety Report 21590266 (Version 1)
Quarter: 2022Q4

REPORT INFORMATION
  Report Type: Spontaneous
  Country: US (occurrence: US)
  Receive Date: 20221114
  Receipt Date: 20221114
  Transmission Date: 20230113
  Serious: Yes (Other)
  Sender: FDA-Public Use
  Company Number: US-REGENERON PHARMACEUTICALS, INC.-2022-144414

PATIENT
  Sex: Male

DRUGS (1)
  1. PRALUENT [Suspect]
     Active Substance: ALIROCUMAB
     Indication: Hypercholesterolaemia
     Dosage: 150 MG, Q2W
     Route: 065
     Dates: start: 2019, end: 2022

REACTIONS (2)
  - Neuropathy peripheral [Not Recovered/Not Resolved]
  - Therapy interrupted [Unknown]

NARRATIVE: CASE EVENT DATE: 20210101
